FAERS Safety Report 4273776-4 (Version None)
Quarter: 2004Q1

REPORT INFORMATION
  Report Type: 
  Country: None (occurrence: None)
  Receive Date: 20040114
  Receipt Date: 20031231
  Transmission Date: 20041129
  Serious: Yes (Disabling)
  Sender: FDA-Public Use
  Company Number: MK200401-0060-1

PATIENT
  Age: 89 Year
  Sex: Male

DRUGS (1)
  1. OPTIRAY 300 [Suspect]
     Indication: COMPUTERISED TOMOGRAM
     Dosage: SINGLE USE, IV
     Route: 042
     Dates: start: 20031020, end: 20031020

REACTIONS (4)
  - BLOOD PRESSURE DECREASED [None]
  - BRONCHOSPASM [None]
  - CONVULSION [None]
  - INCONTINENCE [None]
